FAERS Safety Report 5867781-1 (Version None)
Quarter: 2008Q3

REPORT INFORMATION
  Report Type: 
  Country: None (occurrence: None)
  Receive Date: 20080902
  Receipt Date: 20080819
  Transmission Date: 20090109
  Serious: Yes (Other)
  Sender: FDA-Public Use
  Company Number: AU-ELI_LILLY_AND_COMPANY-AU200808003711

PATIENT
  Age: 75 Year
  Sex: Male

DRUGS (8)
  1. ZYPREXA [Suspect]
     Dosage: 2.5 MG, UNKNOWN
     Route: 048
  2. ZYPREXA [Suspect]
     Dosage: 5 MG, UNKNOWN
     Route: 048
  3. ZYPREXA [Suspect]
     Dosage: 5 MG, UNKNOWN
     Route: 048
  4. VENLAFAXINE HCL [Concomitant]
     Dosage: 37.5 MG, DAILY (1/D)
     Route: 065
  5. RISPERIDONE [Concomitant]
     Dosage: 1 MG, DAILY (1/D)
     Route: 065
  6. QUETIAPINE [Concomitant]
     Dosage: UNK, UNKNOWN
     Route: 065
  7. QUETIAPINE [Concomitant]
     Dosage: 200 MG, DAILY (1/D)
  8. DONEPEZIL HCL [Concomitant]
     Dosage: UNK, UNKNOWN
     Route: 065

REACTIONS (3)
  - DELIRIUM [None]
  - PYREXIA [None]
  - TACHYCARDIA [None]
